FAERS Safety Report 8471423 (Version 3)
Quarter: 2013Q2

REPORT INFORMATION
  Report Type: Spontaneous
  Country: BR (occurrence: BR)
  Receive Date: 20120322
  Receipt Date: 20130515
  Transmission Date: 20140414
  Serious: Yes (Other)
  Sender: FDA-Public Use
  Company Number: BR-AMGEN-BRASP2012015577

PATIENT
  Age: 34 Year
  Sex: Male
  Weight: 93.8 kg

DRUGS (6)
  1. ENBREL [Suspect]
     Indication: ANKYLOSING SPONDYLITIS
     Dosage: 50 MG, WEEKLY
     Route: 058
     Dates: start: 20100607, end: 201111
  2. ENBREL [Suspect]
     Dosage: 50 MG, ONCE WEEKLY
     Route: 058
     Dates: start: 20120503
  3. ENBREL [Suspect]
     Dosage: 50 MG, WEEKLY
     Route: 058
     Dates: start: 201207, end: 201212
  4. INDOMETACIN [Concomitant]
     Indication: SPINAL PAIN
     Dosage: 50 MG, 1X/DAY
  5. INDOMETACIN [Concomitant]
     Dosage: 2 TABLETS OF 25MG (50MG), 1X/DAY
  6. OMEPRAZOL                          /00661201/ [Concomitant]
     Indication: GASTROOESOPHAGEAL REFLUX DISEASE
     Dosage: 40 MG, 1X/DAY

REACTIONS (6)
  - Microcytosis [Unknown]
  - Skin infection [Recovering/Resolving]
  - Rhinitis [Recovering/Resolving]
  - Urinary tract infection [Unknown]
  - Sinusitis fungal [Unknown]
  - Pharyngitis [Unknown]
